FAERS Safety Report 15652169 (Version 1)
Quarter: 2018Q4

REPORT INFORMATION
  Report Type: Report from Study
  Country: None (occurrence: ES)
  Receive Date: 20181123
  Receipt Date: 20181123
  Transmission Date: 20190205
  Serious: Yes (Life-Threatening, Hospitalization, Other)
  Sender: FDA-Public Use
  Company Number: ES-ABBVIE-18S-144-2539520-00

PATIENT
  Age: 67 Year
  Sex: Male

DRUGS (2)
  1. DUODOPA [Suspect]
     Active Substance: CARBIDOPA\LEVODOPA
     Indication: PARKINSON^S DISEASE
     Route: 050
     Dates: start: 20160127, end: 201810
  2. DUODOPA [Suspect]
     Active Substance: CARBIDOPA\LEVODOPA
     Dosage: MD 6+3, CD 1.6ML/HR; ED 2.5
     Route: 050
     Dates: start: 201811

REACTIONS (9)
  - Intra-abdominal fluid collection [Not Recovered/Not Resolved]
  - Myopathy [Recovering/Resolving]
  - On and off phenomenon [Unknown]
  - Off label use [Recovered/Resolved]
  - Intestinal perforation [Recovered/Resolved]
  - Parkinson^s disease [Unknown]
  - Respiratory failure [Recovering/Resolving]
  - Peritonitis [Recovered/Resolved]
  - Atelectasis [Not Recovered/Not Resolved]

NARRATIVE: CASE EVENT DATE: 201810
